FAERS Safety Report 20857187 (Version 2)
Quarter: 2024Q3

REPORT INFORMATION
  Report Type: Spontaneous
  Country: US (occurrence: US)
  Receive Date: 20220520
  Receipt Date: 20240809
  Transmission Date: 20241016
  Serious: No
  Sender: SANOFI AVENTIS
  Company Number: US-SANOFI-01104414

PATIENT
  Age: 48 Year
  Sex: Male

DRUGS (2)
  1. DUPIXENT [Suspect]
     Active Substance: DUPILUMAB
     Indication: Autoimmune disorder
     Dosage: 200 MG, QOW
     Route: 058
     Dates: start: 202011
  2. DUPIXENT [Suspect]
     Active Substance: DUPILUMAB
     Indication: Asthma

REACTIONS (2)
  - Product use in unapproved indication [Unknown]
  - Product preparation error [Unknown]

NARRATIVE: CASE EVENT DATE: 20201101
